FAERS Safety Report 21025607 (Version 2)
Quarter: 2022Q3

REPORT INFORMATION
  Report Type: Report from Study
  Country: CA (occurrence: CA)
  Receive Date: 20220630
  Receipt Date: 20220906
  Transmission Date: 20221027
  Serious: Yes (Other)
  Sender: FDA-Public Use
  Company Number: CA-JNJFOC-20220126475

PATIENT
  Age: 30 Year
  Sex: Female
  Weight: 89 kg

DRUGS (4)
  1. SIMPONI [Suspect]
     Active Substance: GOLIMUMAB
     Indication: Ankylosing spondylitis
     Dosage: ALSO REPORTED 178 MG
     Route: 041
     Dates: start: 20201005
  2. SIMPONI [Suspect]
     Active Substance: GOLIMUMAB
     Route: 041
     Dates: start: 20201012
  3. SIMPONI [Suspect]
     Active Substance: GOLIMUMAB
     Route: 041
     Dates: start: 202104
  4. SIMPONI [Suspect]
     Active Substance: GOLIMUMAB
     Route: 041
     Dates: start: 20220426

REACTIONS (3)
  - Ankylosing spondylitis [Recovered/Resolved]
  - COVID-19 [Unknown]
  - Fatigue [Unknown]
